FAERS Safety Report 4579466-2 (Version None)
Quarter: 2005Q1

REPORT INFORMATION
  Report Type: 
  Country: None (occurrence: None)
  Receive Date: 20050210
  Receipt Date: 20050210
  Transmission Date: 20050727
  Serious: Yes (Other)
  Sender: FDA-Public Use
  Company Number: None

PATIENT
  Sex: Male
  Weight: 48 kg

DRUGS (1)
  1. INTERFERON-ALPHA [Suspect]
     Dosage: 9.0 MU SC 3X / WEEK. CYCLE = 4 WEEKS
     Route: 058
     Dates: start: 20041206

REACTIONS (4)
  - CONDITION AGGRAVATED [None]
  - PAIN IN EXTREMITY [None]
  - SPINAL COLUMN STENOSIS [None]
  - SPINAL COMPRESSION FRACTURE [None]
